FAERS Safety Report 22100466 (Version 1)
Quarter: 2023Q1

REPORT INFORMATION
  Report Type: Spontaneous
  Country: CN (occurrence: CN)
  Receive Date: 20230316
  Receipt Date: 20230316
  Transmission Date: 20230417
  Serious: Yes (Hospitalization, Other)
  Sender: FDA-Public Use
  Company Number: None

PATIENT
  Age: 35 Year
  Sex: Male
  Weight: 82.6 kg

DRUGS (11)
  1. CYCLOPHOSPHAMIDE [Suspect]
     Active Substance: CYCLOPHOSPHAMIDE
     Indication: Acute lymphocytic leukaemia
     Dosage: 1100 MG, QD, DILUTED WITH 250 ML SODIUM CHLORIDE
     Route: 041
     Dates: start: 20230127, end: 20230127
  2. CYCLOPHOSPHAMIDE [Suspect]
     Active Substance: CYCLOPHOSPHAMIDE
     Indication: Leukocytosis
  3. SODIUM CHLORIDE [Suspect]
     Active Substance: SODIUM CHLORIDE
     Indication: Medication dilution
     Dosage: 250 ML, QD, USED TO DILUTE 1100 MG CYCLOPHOSPHAMIDE
     Route: 041
     Dates: start: 20230127, end: 20230127
  4. SODIUM CHLORIDE [Suspect]
     Active Substance: SODIUM CHLORIDE
     Dosage: 250 ML, QD, USED TO DILUTE 70 MG DAUNORUBICIN HYDROCHLORIDE
     Route: 041
     Dates: start: 20230127, end: 20230127
  5. SODIUM CHLORIDE [Suspect]
     Active Substance: SODIUM CHLORIDE
     Dosage: 100 ML, QD, USED TO DILUTE 2 MG VINCRISTINE SULFATE
     Route: 041
     Dates: start: 20230127, end: 20230127
  6. DAUNORUBICIN HYDROCHLORIDE [Suspect]
     Active Substance: DAUNORUBICIN HYDROCHLORIDE
     Indication: Acute lymphocytic leukaemia
     Dosage: 70 MG, QD, DILUTED WITH 250 ML SODIUM CHLORIDE
     Route: 041
     Dates: start: 20230127, end: 20230127
  7. DAUNORUBICIN HYDROCHLORIDE [Suspect]
     Active Substance: DAUNORUBICIN HYDROCHLORIDE
     Indication: Leukocytosis
  8. VINCRISTINE SULFATE [Suspect]
     Active Substance: VINCRISTINE SULFATE
     Indication: Acute lymphocytic leukaemia
     Dosage: 2 MG, QD, DILUTED WITH 100 ML SODIUM CHLORIDE
     Route: 041
     Dates: start: 20230127, end: 20230127
  9. VINCRISTINE SULFATE [Suspect]
     Active Substance: VINCRISTINE SULFATE
     Indication: Leukocytosis
  10. HYDROXYUREA [Suspect]
     Active Substance: HYDROXYUREA
     Indication: Acute lymphocytic leukaemia
     Dosage: 1 G, TID
     Route: 048
     Dates: start: 20230118, end: 20230119
  11. HYDROXYUREA [Suspect]
     Active Substance: HYDROXYUREA
     Indication: Leukocytosis
     Dosage: 0.5 G, BID
     Route: 048
     Dates: start: 20230119, end: 20230124

REACTIONS (1)
  - White blood cell count decreased [Recovering/Resolving]

NARRATIVE: CASE EVENT DATE: 20230127
